FAERS Safety Report 25022726 (Version 2)
Quarter: 2025Q4

REPORT INFORMATION
  Report Type: Spontaneous
  Country: EU (occurrence: EU)
  Receive Date: 20250228
  Receipt Date: 20251001
  Transmission Date: 20260117
  Serious: Yes (Other)
  Sender: TAKEDA
  Company Number: EU-JNJFOC-20241277878

PATIENT
  Age: 65 Year
  Sex: Female

DRUGS (4)
  1. VELCADE [Suspect]
     Active Substance: BORTEZOMIB
     Indication: Thrombotic thrombocytopenic purpura
     Dosage: 1.3 MILLIGRAM/ SQ. METER, Q3WEEKS
  2. VELCADE [Suspect]
     Active Substance: BORTEZOMIB
     Dosage: 1 MILLIGRAM/ SQ. METER
  3. CAPLACIZUMAB [Concomitant]
     Active Substance: CAPLACIZUMAB
     Indication: Thrombotic thrombocytopenic purpura
     Dosage: UNK
  4. CAPLACIZUMAB [Concomitant]
     Active Substance: CAPLACIZUMAB
     Dosage: UNK

REACTIONS (3)
  - Constipation [Unknown]
  - Off label use [Unknown]
  - Paraesthesia [Unknown]
